FAERS Safety Report 9153327 (Version 1)
Quarter: 2013Q1

REPORT INFORMATION
  Report Type: Spontaneous
  Country: US (occurrence: US)
  Receive Date: 20130311
  Receipt Date: 20130311
  Transmission Date: 20140127
  Serious: No
  Sender: FDA-Public Use
  Company Number: US-BIOGENIDEC-2013BI021311

PATIENT
  Sex: Female

DRUGS (2)
  1. TYSABRI [Suspect]
     Indication: MULTIPLE SCLEROSIS
     Route: 042
     Dates: start: 20120808
  2. TYSABRI [Suspect]
     Indication: MULTIPLE SCLEROSIS
     Route: 042
     Dates: end: 20130107

REACTIONS (4)
  - Irritability [Not Recovered/Not Resolved]
  - Epistaxis [Not Recovered/Not Resolved]
  - Sinusitis [Not Recovered/Not Resolved]
  - Viral infection [Not Recovered/Not Resolved]
